FAERS Safety Report 7732776-X (Version None)
Quarter: 2011Q3

REPORT INFORMATION
  Report Type: 
  Country: None (occurrence: None)
  Receive Date: 20110901
  Receipt Date: 20110211
  Transmission Date: 20111222
  Serious: No
  Sender: FDA-Public Use
  Company Number: M2011-005

PATIENT
  Age: 17 Year
  Sex: Female

DRUGS (3)
  1. NASONEX [Concomitant]
  2. MITES [Suspect]
     Dosage: 0.03ML TWICE A WEEK INJECTION
     Dates: start: 20110207
  3. SINGULAIR [Concomitant]

REACTIONS (3)
  - NAUSEA [None]
  - ABDOMINAL PAIN UPPER [None]
  - VOMITING [None]
